FAERS Safety Report 8370998-8 (Version None)
Quarter: 2012Q2

REPORT INFORMATION
  Report Type: 
  Country: None (occurrence: None)
  Receive Date: 20120518
  Receipt Date: 20120515
  Transmission Date: 20120825
  Serious: Yes (Life-Threatening, Hospitalization)
  Sender: FDA-Public Use
  Company Number: AU-B.I. PHARMACEUTICALS,INC./RIDGEFIELD-2011-AU-02341AU

PATIENT
  Sex: Male

DRUGS (10)
  1. FUROSEMIDE [Concomitant]
  2. SPIRONOLACTONE [Concomitant]
  3. RAMIPRIL [Concomitant]
  4. FLOMAXTRA [Concomitant]
  5. SIMVASTATIN [Concomitant]
  6. VENTOLIN [Concomitant]
  7. PRADAXA [Suspect]
     Indication: PULMONARY EMBOLISM
     Dosage: 220 MG
     Dates: start: 20110601
  8. METFORMIN HCL [Concomitant]
  9. FLUTICASONE PROPIONATE/SALMETEROL [Concomitant]
  10. SOTALOL HCL [Concomitant]

REACTIONS (4)
  - CARDIAC FAILURE CONGESTIVE [None]
  - IRON DEFICIENCY ANAEMIA [None]
  - GASTROINTESTINAL HAEMORRHAGE [None]
  - BARRETT'S OESOPHAGUS [None]
